FAERS Safety Report 15067819 (Version 3)
Quarter: 2019Q3

REPORT INFORMATION
  Report Type: Report from Study
  Country: None (occurrence: US)
  Receive Date: 20180626
  Receipt Date: 20190814
  Transmission Date: 20191004
  Serious: Yes (Other)
  Sender: FDA-Public Use
  Company Number: US-ABBVIE-17K-163-1992586-00

PATIENT
  Age: 51 Year
  Sex: Female

DRUGS (2)
  1. HUMIRA [Suspect]
     Active Substance: ADALIMUMAB
     Indication: PSORIASIS
  2. HUMIRA [Suspect]
     Active Substance: ADALIMUMAB
     Indication: PSORIATIC ARTHROPATHY
     Route: 058
     Dates: start: 20170426

REACTIONS (10)
  - Mobility decreased [Unknown]
  - Gastroenteritis viral [Recovered/Resolved]
  - Paralysis [Unknown]
  - Sciatica [Recovered/Resolved]
  - Back disorder [Unknown]
  - Arthralgia [Recovered/Resolved]
  - Intervertebral disc protrusion [Recovered/Resolved]
  - Psoriasis [Unknown]
  - Spinal stenosis [Recovering/Resolving]
  - Paralysis [Unknown]

NARRATIVE: CASE EVENT DATE: 201705
